FAERS Safety Report 19470857 (Version 1)
Quarter: 2021Q2

REPORT INFORMATION
  Report Type: Report from Study
  Country: None (occurrence: US)
  Receive Date: 20210629
  Receipt Date: 20210629
  Transmission Date: 20210717
  Serious: Yes (Other)
  Sender: FDA-Public Use
  Company Number: US-ABBVIE-21K-163-3939670-00

PATIENT
  Age: 66 Year
  Sex: Female

DRUGS (1)
  1. HUMIRA [Suspect]
     Active Substance: ADALIMUMAB
     Indication: CROHN^S DISEASE
     Route: 058

REACTIONS (5)
  - Syncope [Recovered/Resolved]
  - Epilepsy [Unknown]
  - Cardiomyopathy [Unknown]
  - Electroencephalogram abnormal [Unknown]
  - Exposure to extreme temperature [Recovered/Resolved]

NARRATIVE: CASE EVENT DATE: 202106
